FAERS Safety Report 5008894-6 (Version None)
Quarter: 2006Q2

REPORT INFORMATION
  Report Type: 
  Country: None (occurrence: None)
  Receive Date: 20060518
  Receipt Date: 20060505
  Transmission Date: 20061013
  Serious: Yes (Hospitalization)
  Sender: FDA-Public Use
  Company Number: MEDI-0004253

PATIENT
  Age: 10 Month
  Sex: Female
  Weight: 7.8 kg

DRUGS (9)
  1. SYNAGIS [Suspect]
     Indication: ANTIVIRAL PROPHYLAXIS
     Dosage: SEE IMAGE
     Route: 030
     Dates: start: 20051111, end: 20060203
  2. SYNAGIS [Suspect]
     Indication: ANTIVIRAL PROPHYLAXIS
     Dosage: SEE IMAGE
     Route: 030
     Dates: start: 20060313, end: 20060313
  3. SYNAGIS [Suspect]
     Indication: ANTIVIRAL PROPHYLAXIS
     Dosage: SEE IMAGE
     Route: 030
     Dates: start: 20051111
  4. SYNAGIS [Suspect]
     Indication: ANTIVIRAL PROPHYLAXIS
     Dosage: SEE IMAGE
     Route: 030
     Dates: start: 20051207
  5. SYNAGIS [Suspect]
     Indication: ANTIVIRAL PROPHYLAXIS
     Dosage: SEE IMAGE
     Route: 030
     Dates: start: 20060103
  6. DIGOXIN PEDIATRIC ELIXIR (DIGOXIN) [Concomitant]
  7. RANITIDINE SYRUP (FUROSEMIDE) [Concomitant]
  8. FUROSEMIDE SOLUTION (FUROSEMIDE) [Concomitant]
  9. ACETAMINOPHEN [Concomitant]

REACTIONS (8)
  - DEVELOPMENTAL DELAY [None]
  - DYSPNOEA [None]
  - EAR INFECTION [None]
  - POST PROCEDURAL COMPLICATION [None]
  - PULMONARY OEDEMA [None]
  - RESPIRATORY SYNCYTIAL VIRUS INFECTION [None]
  - SINUS TACHYCARDIA [None]
  - VOMITING [None]
